FAERS Safety Report 25845326 (Version 1)
Quarter: 2025Q3

REPORT INFORMATION
  Report Type: Spontaneous
  Country: EU (occurrence: EU)
  Receive Date: 20250925
  Receipt Date: 20250925
  Transmission Date: 20251020
  Serious: Yes (Other)
  Sender: CHEPLAPHARM
  Company Number: None

PATIENT
  Age: 34 Year
  Sex: Male
  Weight: 69 kg

DRUGS (5)
  1. CLONAZEPAM [Suspect]
     Active Substance: CLONAZEPAM
     Indication: Bipolar disorder
     Dosage: AT A DOSE OF 40 DROPS (1/12 MILLILITRE) EVERY 1 DAY(S)?DAILY DOSE: 40 DROP
     Route: 048
     Dates: start: 20250626
  2. AMISULPRIDE [Suspect]
     Active Substance: AMISULPRIDE
     Indication: Bipolar disorder
     Dosage: 400 MG AT 8 A.M. AND 800 MG AT 7 P.M.?DAILY DOSE: 1200 MILLIGRAM
     Route: 048
     Dates: start: 20240126
  3. LEVOMEPROMAZINE [Suspect]
     Active Substance: LEVOMEPROMAZINE
     Indication: Bipolar disorder
     Dosage: AT A DOSE OF 250 DROPS (1/12 MILLILITRE) EVERY 1 DAY(S)?DAILY DOSE: 250 DROP
     Route: 048
     Dates: start: 20240126
  4. QUETIAPINE [Suspect]
     Active Substance: QUETIAPINE
     Indication: Bipolar disorder
     Dosage: DAILY DOSE: 600 MILLIGRAM
     Route: 048
     Dates: start: 20240129
  5. OLANZAPINE [Suspect]
     Active Substance: OLANZAPINE
     Indication: Bipolar disorder
     Dosage: DAILY DOSE: 10 MILLIGRAM
     Route: 048
     Dates: start: 20240126, end: 20250717

REACTIONS (3)
  - Hepatic cytolysis [Not Recovered/Not Resolved]
  - Hepatitis C [Unknown]
  - Off label use [Not Recovered/Not Resolved]

NARRATIVE: CASE EVENT DATE: 20250626
